FAERS Safety Report 13374120 (Version 1)
Quarter: 2017Q1

REPORT INFORMATION
  Report Type: Spontaneous
  Country: US (occurrence: US)
  Receive Date: 20170327
  Receipt Date: 20170327
  Transmission Date: 20170429
  Serious: No
  Sender: FDA-Public Use
  Company Number: US-009507513-1703USA002250

PATIENT
  Age: 20 Year
  Sex: Female
  Weight: 72.56 kg

DRUGS (2)
  1. NEXPLANON [Suspect]
     Active Substance: ETONOGESTREL
     Indication: CONTRACEPTION
     Dosage: 1 DF, LEFT ARM
     Route: 059
     Dates: start: 20170106
  2. NEXPLANON [Suspect]
     Active Substance: ETONOGESTREL
     Indication: MENSTRUATION IRREGULAR

REACTIONS (3)
  - Implant site swelling [Unknown]
  - Product use issue [Not Recovered/Not Resolved]
  - Implant site pain [Unknown]

NARRATIVE: CASE EVENT DATE: 20170106
